FAERS Safety Report 6969864-1 (Version None)
Quarter: 2010Q3

REPORT INFORMATION
  Report Type: 
  Country: None (occurrence: None)
  Receive Date: 20100908
  Receipt Date: 20100827
  Transmission Date: 20110219
  Serious: Yes (Hospitalization)
  Sender: FDA-Public Use
  Company Number: IN-WYE-H17156010

PATIENT
  Sex: Male
  Weight: 56 kg

DRUGS (4)
  1. TEMSIROLIMUS [Suspect]
     Indication: METASTATIC RENAL CELL CARCINOMA
     Route: 042
     Dates: start: 20100224, end: 20100901
  2. AMLODIPINE [Concomitant]
     Indication: HYPERTENSION
     Dosage: 5 MG; FREQUENCY NOT PROVIDED
     Route: 065
     Dates: start: 20100102
  3. ROSUVASTATIN [Concomitant]
     Indication: HYPERTRIGLYCERIDAEMIA
     Dosage: NOT PROVIDED
     Route: 065
     Dates: start: 20100325
  4. BEVACIZUMAB [Suspect]
     Indication: METASTATIC RENAL CELL CARCINOMA
     Route: 042
     Dates: start: 20100224, end: 20100901

REACTIONS (1)
  - CHOLECYSTITIS ACUTE [None]
